FAERS Safety Report 10100367 (Version 2)
Quarter: 2014Q2

REPORT INFORMATION
  Report Type: Spontaneous
  Country: HR (occurrence: HR)
  Receive Date: 20140423
  Receipt Date: 20140512
  Transmission Date: 20141212
  Serious: Yes (Other)
  Sender: FDA-Public Use
  Company Number: HR-TEVA-477102ISR

PATIENT
  Age: 6 Month
  Sex: Female
  Weight: 7 kg

DRUGS (1)
  1. KLAVOCIN BID SIRUP [Suspect]
     Indication: EAR INFECTION
     Dosage: LIQUIDS, DRY SUSPENSIONS/SYRUPS/DROPS
     Route: 048

REACTIONS (1)
  - Dermatitis atopic [Not Recovered/Not Resolved]
